FAERS Safety Report 4707011-7 (Version None)
Quarter: 2005Q3

REPORT INFORMATION
  Report Type: 
  Country: None (occurrence: None)
  Receive Date: 20050705
  Receipt Date: 20050705
  Transmission Date: 20060218
  Serious: No
  Sender: FDA-Public Use
  Company Number: None

PATIENT
  Age: 61 Year
  Sex: Female
  Weight: 74.7 kg

DRUGS (1)
  1. CAPECITABINE 1800 MG/M2/DAY [Suspect]
     Indication: NEOPLASM
     Dosage: 3300MG X 14D, PO
     Route: 048
     Dates: start: 20050525, end: 20050607

REACTIONS (4)
  - HYDRONEPHROSIS [None]
  - PROCEDURAL COMPLICATION [None]
  - RADIATION INJURY [None]
  - RENAL INTERSTITIAL FIBROSIS [None]
